FAERS Safety Report 21808607 (Version 1)
Quarter: 2023Q1

REPORT INFORMATION
  Report Type: Other
  Country: US (occurrence: US)
  Receive Date: 20230103
  Receipt Date: 20230103
  Transmission Date: 20230417
  Serious: Yes (Hospitalization, Other)
  Sender: FDA-Public Use
  Company Number: US-DEXPHARM-20222653

PATIENT
  Age: 50 Year
  Sex: Female

DRUGS (3)
  1. BARICITINIB [Interacting]
     Active Substance: BARICITINIB
     Indication: COVID-19
     Dosage: PER ORAL (PO) 4 MG OF BARICITINIB
     Route: 050
  2. REMDESIVIR [Interacting]
     Active Substance: REMDESIVIR
     Indication: COVID-19
     Dosage: INTRAVENOUS (IV) 200 MG OF REMDESIVIR
     Route: 050
  3. DEXAMETHASONE [Interacting]
     Active Substance: DEXAMETHASONE
     Indication: COVID-19
     Dosage: 8 MG OF DEXAMETHASONE

REACTIONS (2)
  - Leukopenia [Recovering/Resolving]
  - Drug interaction [Recovering/Resolving]
